FAERS Safety Report 11758180 (Version 1)
Quarter: 2015Q4

REPORT INFORMATION
  Report Type: Report from Study
  Country: BR (occurrence: BR)
  Receive Date: 20151120
  Receipt Date: 20151120
  Transmission Date: 20160304
  Serious: Yes (Death)
  Sender: FDA-Public Use
  Company Number: PHHY2015BR151503

PATIENT
  Age: 79 Year
  Sex: Female
  Weight: 78 kg

DRUGS (1)
  1. FORASEQ [Suspect]
     Active Substance: BUDESONIDE\FORMOTEROL FUMARATE
     Indication: LUNG DISORDER
     Dosage: 12/400 UG, Q12H
     Route: 065

REACTIONS (2)
  - Lung neoplasm malignant [Fatal]
  - Product use issue [Unknown]

NARRATIVE: CASE EVENT DATE: 20151017
